FAERS Safety Report 9508378 (Version 1)
Quarter: 2013Q3

REPORT INFORMATION
  Report Type: Spontaneous
  Country: US (occurrence: None)
  Receive Date: 20130906
  Receipt Date: 20130906
  Transmission Date: 20140515
  Serious: Yes (Hospitalization)
  Sender: FDA-Public Use
  Company Number: None

PATIENT
  Age: 66 Year
  Sex: Male
  Weight: 91 kg

DRUGS (14)
  1. XARELTO [Suspect]
     Indication: THROMBOSIS PROPHYLAXIS
     Route: 048
     Dates: start: 20130720, end: 20130903
  2. XARELTO [Suspect]
     Indication: THROMBOSIS PROPHYLAXIS
     Route: 048
     Dates: start: 20130720, end: 20130903
  3. PLAVIX 75MG BMS/SANOFI [Suspect]
     Indication: CORONARY ARTERY DISEASE
     Route: 048
     Dates: start: 20100920, end: 20130903
  4. PLAVIX 75MG BMS/SANOFI [Suspect]
     Indication: CORONARY ARTERY BYPASS
     Route: 048
     Dates: start: 20100920, end: 20130903
  5. AMIODARONE [Concomitant]
  6. ATORVASTATIN [Concomitant]
  7. COREG [Concomitant]
  8. FENOFIBRATE [Concomitant]
  9. FUROSEMIDE [Concomitant]
  10. GLIMEPIRIDE [Concomitant]
  11. NTG [Concomitant]
  12. PREDNISONE [Concomitant]
  13. RANOLAZINE [Concomitant]
  14. VITAMIN E [Concomitant]

REACTIONS (1)
  - Upper gastrointestinal haemorrhage [None]
